FAERS Safety Report 8595670-0 (Version None)
Quarter: 2012Q3

REPORT INFORMATION
  Report Type: 
  Country: None (occurrence: None)
  Receive Date: 20120815
  Receipt Date: 20120808
  Transmission Date: 20120928
  Serious: Yes (Hospitalization)
  Sender: FDA-Public Use
  Company Number: CH-PFIZER INC-2012194470

PATIENT
  Sex: Male
  Weight: 88.6 kg

DRUGS (7)
  1. GENOTROPIN [Suspect]
     Dosage: 0.6 MG, 7/WK
     Route: 058
     Dates: start: 20041109
  2. HYDROCORTISONE [Concomitant]
     Indication: BLOOD CORTICOTROPHIN DECREASED
     Dosage: UNK
     Dates: start: 20010701
  3. TESTOSTERONE UNDECANOATE [Concomitant]
     Indication: HYPOGONADISM
     Dosage: UNK
     Dates: start: 19910115
  4. CORTISONE ACETATE [Concomitant]
     Indication: BLOOD CORTICOTROPHIN DECREASED
     Dosage: UNK
     Dates: start: 19910123
  5. FLURAZEPAM [Concomitant]
     Indication: SLEEP DISORDER
     Dosage: UNK
     Dates: start: 20010701
  6. GEMFIBROZIL [Concomitant]
     Indication: HYPERLIPIDAEMIA
     Dosage: UNK
     Dates: start: 19910315
  7. LEVOTHYROXINE [Concomitant]
     Indication: BLOOD THYROID STIMULATING HORMONE DECREASED
     Dosage: UNK
     Dates: start: 19910123

REACTIONS (1)
  - CATARACT [None]
